FAERS Safety Report 24642433 (Version 1)
Quarter: 2024Q4

REPORT INFORMATION
  Report Type: Spontaneous
  Country: BG (occurrence: BG)
  Receive Date: 20241120
  Receipt Date: 20241120
  Transmission Date: 20250114
  Serious: Yes (Hospitalization, Other)
  Sender: MYLAN
  Company Number: BG-SERVIER-S24013945

PATIENT
  Age: 80 Year
  Sex: Female

DRUGS (6)
  1. CANDESARTAN CILEXETIL\HYDROCHLOROTHIAZIDE [Suspect]
     Active Substance: CANDESARTAN CILEXETIL\HYDROCHLOROTHIAZIDE
     Indication: Hypertension
     Dosage: UNK UNK, PRN, 16/12.5 MG, PRN
     Route: 048
     Dates: start: 2022
  2. GLICLAZIDE [Suspect]
     Active Substance: GLICLAZIDE
     Indication: Type 2 diabetes mellitus
     Dosage: 60 MILLIGRAM, QD, 60 MG, QD
     Route: 048
     Dates: start: 2000
  3. METFORMIN HYDROCHLORIDE [Suspect]
     Active Substance: METFORMIN HYDROCHLORIDE
     Indication: Type 2 diabetes mellitus
     Dosage: 850 MILLIGRAM, QD, 850 MG, QD
     Route: 048
     Dates: start: 2000
  4. SOTALOL HYDROCHLORIDE [Suspect]
     Active Substance: SOTALOL HYDROCHLORIDE
     Indication: Hypertension
     Dosage: 40 MILLIGRAM, BID, 40 MG, BID
     Route: 048
     Dates: start: 2022
  5. BISOPROLOL FUMARATE [Suspect]
     Active Substance: BISOPROLOL FUMARATE
     Indication: Hypertension
     Dosage: 5 MILLIGRAM, PRN, 5 MG, PRN
     Route: 048
     Dates: start: 2007
  6. LERCANIDIPINE HYDROCHLORIDE [Suspect]
     Active Substance: LERCANIDIPINE HYDROCHLORIDE
     Indication: Hypertension
     Dosage: 20 MILLIGRAM, PRN, 20 MG, PRN
     Route: 065
     Dates: start: 2022

REACTIONS (1)
  - Basal cell carcinoma [Unknown]
